FAERS Safety Report 21861292 (Version 1)
Quarter: 2023Q1

REPORT INFORMATION
  Report Type: Spontaneous
  Country: US (occurrence: US)
  Receive Date: 20230113
  Receipt Date: 20230113
  Transmission Date: 20230417
  Serious: Yes (Other)
  Sender: FDA-Public Use
  Company Number: US-AMGEN-USASP2023003137

PATIENT
  Sex: Male

DRUGS (3)
  1. REPATHA [Suspect]
     Active Substance: EVOLOCUMAB
     Indication: Product used for unknown indication
     Dosage: UNK
     Route: 065
  2. OBINUTUZUMAB [Concomitant]
     Active Substance: OBINUTUZUMAB
  3. BENDAMUSTINE [Concomitant]
     Active Substance: BENDAMUSTINE

REACTIONS (2)
  - Chronic lymphocytic leukaemia [Unknown]
  - Injection site urticaria [Unknown]
